FAERS Safety Report 7999919 (Version 4)
Quarter: 2013Q1

REPORT INFORMATION
  Report Type: Spontaneous
  Country: CA (occurrence: CA)
  Receive Date: 20110621
  Receipt Date: 20130217
  Transmission Date: 20140127
  Serious: Yes (Death, Other)
  Sender: FDA-Public Use
  Company Number: CA-JNJFOC-20110604379

PATIENT
  Age: 67 None
  Sex: Male
  Weight: 73 kg

DRUGS (15)
  1. REMICADE [Suspect]
     Indication: CROHN^S DISEASE
     Route: 042
     Dates: start: 20120323, end: 20120323
  2. REMICADE [Suspect]
     Indication: CROHN^S DISEASE
     Route: 042
     Dates: start: 200912, end: 20110802
  3. VITAMIN B12 [Concomitant]
     Dosage: 1200
     Route: 065
  4. PRAMIPEXOLE [Concomitant]
     Route: 065
  5. RANITIDINE [Concomitant]
     Route: 065
  6. LORAZEPAM [Concomitant]
     Route: 065
  7. AZATHIOPRINE [Concomitant]
     Route: 065
  8. ADVAIR [Concomitant]
     Dosage: 2 PUFFS TWICE DAILY
     Route: 065
  9. PREDNISONE [Concomitant]
     Route: 065
  10. LOPERAMIDE [Concomitant]
     Dosage: 2 TO 2.5 MG DAILY
     Route: 065
  11. HYDRAZIDE [Concomitant]
     Route: 065
  12. TYLENOL 3 WITH CODEINE [Concomitant]
     Route: 048
  13. OXAZEPAM [Concomitant]
     Route: 065
  14. VISINE [Concomitant]
     Route: 065
  15. TRIAZOLAM [Concomitant]
     Route: 065

REACTIONS (6)
  - Death [Fatal]
  - Gastric cancer [Not Recovered/Not Resolved]
  - Pneumonia [Not Recovered/Not Resolved]
  - Weight decreased [Not Recovered/Not Resolved]
  - Gastric infection [Not Recovered/Not Resolved]
  - Motion sickness [Not Recovered/Not Resolved]
